FAERS Safety Report 17982095 (Version 4)
Quarter: 2020Q3

REPORT INFORMATION
  Report Type: Spontaneous
  Country: US (occurrence: US)
  Receive Date: 20200706
  Receipt Date: 20200923
  Transmission Date: 20201103
  Serious: No
  Sender: FDA-Public Use
  Company Number: US-GLAXOSMITHKLINE-US2020AMR118876

PATIENT
  Sex: Female

DRUGS (2)
  1. ZEJULA [Suspect]
     Active Substance: NIRAPARIB
     Indication: OVARIAN CANCER
     Dosage: 200 MG, QD
     Route: 048
     Dates: start: 20200618
  2. ZEJULA [Suspect]
     Active Substance: NIRAPARIB
     Dosage: 100 MG, QD

REACTIONS (7)
  - Insomnia [Unknown]
  - Contusion [Unknown]
  - Haemoglobin decreased [Recovering/Resolving]
  - Constipation [Unknown]
  - Off label use [Unknown]
  - Platelet count decreased [Recovering/Resolving]
  - Laboratory test abnormal [Recovering/Resolving]
